FAERS Safety Report 6235388-2 (Version None)
Quarter: 2009Q2

REPORT INFORMATION
  Report Type: 
  Country: None (occurrence: None)
  Receive Date: 20090618
  Receipt Date: 20080929
  Transmission Date: 20091009
  Serious: No
  Sender: FDA-Public Use
  Company Number: US-ASTRAZENECA-2008UW21222

PATIENT
  Age: 76 Year
  Sex: Female
  Weight: 65.8 kg

DRUGS (8)
  1. ENTOCORT EC [Suspect]
     Indication: COLITIS
     Route: 048
  2. ENTOCORT EC [Suspect]
     Route: 048
  3. ENTOCORT EC [Suspect]
     Route: 048
  4. TOMOXIFEN [Concomitant]
     Route: 048
  5. SYNTHROID [Concomitant]
  6. NITROFURANTOIN [Concomitant]
  7. NORVASC [Concomitant]
  8. VITAMINS [Concomitant]

REACTIONS (1)
  - URTICARIA [None]
